FAERS Safety Report 15791690 (Version 1)
Quarter: 2019Q1

REPORT INFORMATION
  Report Type: Spontaneous
  Country: US (occurrence: US)
  Receive Date: 20190105
  Receipt Date: 20190105
  Transmission Date: 20190417
  Serious: No
  Sender: FDA-Public Use
  Company Number: US-DRREDDYS-USA/USA/19/0106562

PATIENT
  Age: 62 Year
  Sex: Female
  Weight: 118.18 kg

DRUGS (4)
  1. IBUPROFEN 400,600,800 MG FILM COATED TABLETS [Suspect]
     Active Substance: IBUPROFEN
     Indication: PAIN
  2. AMLODIPINE [Concomitant]
     Active Substance: AMLODIPINE BESYLATE
     Indication: HYPERTENSION
  3. HYDROCHLOROTHIAZIDE. [Concomitant]
     Active Substance: HYDROCHLOROTHIAZIDE
     Indication: HYPERTENSION
  4. IBUPROFEN 400,600,800 MG FILM COATED TABLETS [Suspect]
     Active Substance: IBUPROFEN

REACTIONS (2)
  - Treatment noncompliance [Unknown]
  - Uterine leiomyoma [Unknown]
